FAERS Safety Report 25812663 (Version 3)
Quarter: 2025Q4

REPORT INFORMATION
  Report Type: Spontaneous
  Country: JP (occurrence: JP)
  Receive Date: 20250917
  Receipt Date: 20251222
  Transmission Date: 20260117
  Serious: Yes (Death, Other)
  Sender: OTSUKA
  Company Number: JP-MMM-Otsuka-DU8AY2ZG

PATIENT
  Age: 77 Year
  Sex: Female

DRUGS (15)
  1. REXULTI [Suspect]
     Active Substance: BREXPIPRAZOLE
     Indication: Dementia Alzheimer^s type
     Dosage: 2 MG, DAILY
     Route: 061
     Dates: start: 20250225
  2. REXULTI [Suspect]
     Active Substance: BREXPIPRAZOLE
     Indication: Hallucination
     Dosage: 0.5 MG, DAILY
     Route: 061
     Dates: start: 20241203, end: 20241209
  3. REXULTI [Suspect]
     Active Substance: BREXPIPRAZOLE
     Indication: Anxiety
     Dosage: 1 MG, DAILY
     Route: 061
     Dates: start: 20241210, end: 20241216
  4. REXULTI [Suspect]
     Active Substance: BREXPIPRAZOLE
     Indication: Irritability
     Dosage: 1.5 MG, DAILY
     Route: 061
     Dates: start: 20241217, end: 20250113
  5. REXULTI [Suspect]
     Active Substance: BREXPIPRAZOLE
     Indication: Agitation
     Dosage: 2 MG, DAILY
     Route: 061
     Dates: start: 20250114, end: 20250224
  6. RISPERIDONE [Suspect]
     Active Substance: RISPERIDONE
     Indication: Neuropsychological symptoms
     Dosage: 2 ML, DAILY
     Route: 061
     Dates: start: 20250527
  7. RISPERIDONE [Suspect]
     Active Substance: RISPERIDONE
     Dosage: 2 ML, DAILY
     Route: 061
     Dates: end: 20241202
  8. RISPERIDONE [Suspect]
     Active Substance: RISPERIDONE
     Dosage: 1 ML, DAILY
     Route: 061
     Dates: start: 20241203, end: 20250303
  9. RISPERIDONE [Suspect]
     Active Substance: RISPERIDONE
     Dosage: 1.5 ML, DAILY
     Route: 061
     Dates: start: 20250304, end: 20250526
  10. LANSOPRAZOLE [Concomitant]
     Active Substance: LANSOPRAZOLE
     Indication: Product used for unknown indication
     Dosage: 15 MG, DAILY
     Route: 061
     Dates: start: 20191217
  11. BENIDIPINE HYDROCHLORIDE [Concomitant]
     Active Substance: BENIDIPINE HYDROCHLORIDE
     Indication: Product used for unknown indication
     Dosage: 2 MG, DAILY
     Route: 061
     Dates: start: 20240613
  12. AMBROXOL HYDROCHLORIDE [Concomitant]
     Active Substance: AMBROXOL HYDROCHLORIDE
     Indication: Product used for unknown indication
     Dosage: 45 MG, DAILY
     Route: 061
     Dates: start: 20190418
  13. BETHANECHOL CHLORIDE [Concomitant]
     Active Substance: BETHANECHOL CHLORIDE
     Indication: Product used for unknown indication
     Dosage: 0.6 G, DAILY
     Route: 061
     Dates: start: 20170102
  14. ELOBIXIBAT [Concomitant]
     Active Substance: ELOBIXIBAT
     Indication: Product used for unknown indication
     Dosage: 10 MG, DAILY
     Route: 061
     Dates: start: 20200414
  15. LINZESS [Concomitant]
     Active Substance: LINACLOTIDE
     Indication: Product used for unknown indication
     Dosage: 0.25 MG, DAILY
     Route: 061
     Dates: start: 20241015

REACTIONS (4)
  - Acute myocardial infarction [Fatal]
  - Dementia Alzheimer^s type [Recovering/Resolving]
  - Condition aggravated [Recovering/Resolving]
  - Therapeutic product effect incomplete [Recovering/Resolving]

NARRATIVE: CASE EVENT DATE: 20250304
